FAERS Safety Report 8027758-7 (Version None)
Quarter: 2012Q1

REPORT INFORMATION
  Report Type: 
  Country: None (occurrence: None)
  Receive Date: 20120106
  Receipt Date: 20120106
  Transmission Date: 20120608
  Serious: No
  Sender: FDA-Public Use
  Company Number: None

PATIENT
  Sex: Male
  Weight: 112.49 kg

DRUGS (1)
  1. PROTONIX [Suspect]
     Indication: BARRETT'S OESOPHAGUS
     Dosage: ONE
     Route: 048
     Dates: start: 20000906, end: 20001129

REACTIONS (1)
  - GASTROINTESTINAL PAIN [None]
